FAERS Safety Report 19359960 (Version 4)
Quarter: 2021Q3

REPORT INFORMATION
  Report Type: Spontaneous
  Country: US (occurrence: US)
  Receive Date: 20210601
  Receipt Date: 20210927
  Transmission Date: 20211014
  Serious: Yes (Hospitalization, Other)
  Sender: FDA-Public Use
  Company Number: US-ORGANON-1410USA008138

PATIENT
  Sex: Male
  Weight: 65.76 kg

DRUGS (4)
  1. FOSAMAX [Suspect]
     Active Substance: ALENDRONATE SODIUM
     Dosage: 70 MG, 1 TABLET BY MOUTH EVERY WEEK ON THE SAME DAY AND SAME TIME (QW)
     Route: 048
     Dates: start: 2000, end: 201211
  2. ALENDRONATE SODIUM. [Suspect]
     Active Substance: ALENDRONATE SODIUM
     Indication: OSTEOPENIA
     Dosage: 70 MG, QW
     Route: 048
     Dates: start: 2006, end: 201211
  3. CALCIUM CARBONATE. [Concomitant]
     Active Substance: CALCIUM CARBONATE
     Dosage: 1200 MG, UNK
     Dates: start: 1995, end: 2014
  4. BORAGO OFFICINALIS OIL;FISH OIL;LINUM USITATISSIMUM OIL [Concomitant]
     Dosage: 1600 MG, UNK
     Dates: start: 1995

REACTIONS (46)
  - Hyperchlorhydria [Unknown]
  - Peripheral vascular disorder [Unknown]
  - Arthralgia [Not Recovered/Not Resolved]
  - Osteopenia [Unknown]
  - Hip arthroplasty [Unknown]
  - Osteomyelitis [Unknown]
  - Hip arthroplasty [Unknown]
  - Vitamin D deficiency [Unknown]
  - Anaemia [Unknown]
  - Stress fracture [Unknown]
  - Gastrooesophageal reflux disease [Unknown]
  - Gastric operation [Unknown]
  - Colitis ulcerative [Unknown]
  - Nephrolithiasis [Unknown]
  - Bone infarction [Unknown]
  - Pain in extremity [Unknown]
  - Gastric ulcer [Unknown]
  - Prostatic specific antigen increased [Unknown]
  - Adverse event [Unknown]
  - Osteoporosis [Unknown]
  - Insomnia [Unknown]
  - Anaemia [Unknown]
  - Epilepsy [Unknown]
  - Femur fracture [Recovering/Resolving]
  - Concussion [Unknown]
  - Blindness [Unknown]
  - Abscess [Recovered/Resolved]
  - Fall [Unknown]
  - Dental prosthesis placement [Unknown]
  - Pain in extremity [Unknown]
  - Pain in extremity [Unknown]
  - Rotator cuff repair [Unknown]
  - Femur fracture [Recovering/Resolving]
  - Femur fracture [Unknown]
  - Muscle strain [Unknown]
  - Gait disturbance [Recovered/Resolved]
  - Colectomy [Unknown]
  - Muscle fatigue [Unknown]
  - Back pain [Unknown]
  - Pain in extremity [Unknown]
  - Open reduction of fracture [Unknown]
  - Haematoma [Unknown]
  - Joint ankylosis [Unknown]
  - Scar [Unknown]
  - Scab [Not Recovered/Not Resolved]
  - Arthralgia [Unknown]

NARRATIVE: CASE EVENT DATE: 200209
